FAERS Safety Report 9879472 (Version 2)
Quarter: 2014Q1

REPORT INFORMATION
  Report Type: Spontaneous
  Country: US (occurrence: US)
  Receive Date: 20140206
  Receipt Date: 20140211
  Transmission Date: 20141002
  Serious: Yes (Death)
  Sender: FDA-Public Use
  Company Number: CHPA2014US002257

PATIENT
  Age: 57 Year
  Sex: Female

DRUGS (1)
  1. VOLTAREN GEL [Suspect]
     Route: 061

REACTIONS (1)
  - Death [Fatal]
